FAERS Safety Report 5353700-3 (Version None)
Quarter: 2007Q2

REPORT INFORMATION
  Report Type: 
  Country: None (occurrence: None)
  Receive Date: 20070521
  Receipt Date: 20070130
  Transmission Date: 20071010
  Serious: No
  Sender: FDA-Public Use
  Company Number: WAES 0701USA05077

PATIENT
  Age: 60 Year
  Sex: Male

DRUGS (9)
  1. JANUVIA [Suspect]
     Indication: DIABETES MELLITUS NON-INSULIN-DEPENDENT
     Dosage: PO
     Route: 048
     Dates: start: 20060730
  2. AVANDIA [Concomitant]
  3. DIOVAN [Concomitant]
  4. DYAZIDE [Concomitant]
  5. FLOMAX [Concomitant]
  6. GLUCOPHAGE [Concomitant]
  7. PROSCAR [Concomitant]
  8. ASPIRIN [Concomitant]
  9. OMEGA-3 MARINE TRIGLYCERIDES [Concomitant]

REACTIONS (1)
  - RETROGRADE EJACULATION [None]
